FAERS Safety Report 4583202-3 (Version None)
Quarter: 2005Q1

REPORT INFORMATION
  Report Type: 
  Country: None (occurrence: None)
  Receive Date: 20050125
  Receipt Date: 20040913
  Transmission Date: 20050727
  Serious: No
  Sender: FDA-Public Use
  Company Number: USA030947892

PATIENT
  Age: 87 Year
  Sex: Female
  Weight: 45 kg

DRUGS (6)
  1. FORTEO [Suspect]
     Indication: OSTEOPOROSIS
     Dosage: 20 UG DAY
     Dates: start: 20030918
  2. EVISTA [Concomitant]
  3. CALCIUM GLUCONATE [Concomitant]
  4. DYANCIRC (ISRADIPINE) [Concomitant]
  5. VITAMINS [Concomitant]
  6. ASPIRIN [Concomitant]

REACTIONS (8)
  - BACK PAIN [None]
  - BODY TEMPERATURE INCREASED [None]
  - DIZZINESS [None]
  - FEELING ABNORMAL [None]
  - FLUID INTAKE REDUCED [None]
  - HEART RATE INCREASED [None]
  - ORAL INTAKE REDUCED [None]
  - WEIGHT DECREASED [None]
